FAERS Safety Report 17524655 (Version 1)
Quarter: 2020Q1

REPORT INFORMATION
  Report Type: Spontaneous
  Country: US (occurrence: US)
  Receive Date: 20200310
  Receipt Date: 20200310
  Transmission Date: 20200409
  Serious: No
  Sender: FDA-Public Use
  Company Number: None

PATIENT
  Age: 80 Year
  Sex: Female

DRUGS (11)
  1. SPIRONOLACTONE. [Concomitant]
     Active Substance: SPIRONOLACTONE
  2. ADVAIR DISKU AER [Concomitant]
  3. CHLORPROPAM [Concomitant]
  4. FUROSEMIDE. [Concomitant]
     Active Substance: FUROSEMIDE
  5. FOSAMAX [Concomitant]
     Active Substance: ALENDRONATE SODIUM
  6. METOPROLOL TAR [Concomitant]
     Active Substance: METOPROLOL TARTRATE
  7. ALBUTEROL. [Concomitant]
     Active Substance: ALBUTEROL
  8. ASPIRIN. [Concomitant]
     Active Substance: ASPIRIN
  9. ELIQUIS [Concomitant]
     Active Substance: APIXABAN
  10. TOBRAMYCIN. [Suspect]
     Active Substance: TOBRAMYCIN
     Indication: BRONCHIECTASIS
     Dosage: ?          OTHER ROUTE:NEBULIZER?
     Dates: start: 20180201
  11. BIOTIN [Concomitant]
     Active Substance: BIOTIN

REACTIONS (1)
  - Cardiac pacemaker insertion [None]

NARRATIVE: CASE EVENT DATE: 20200309
